FAERS Safety Report 9115356 (Version 1)
Quarter: 2013Q1

REPORT INFORMATION
  Report Type: Spontaneous
  Country: US (occurrence: None)
  Receive Date: 20130129
  Receipt Date: 20130129
  Transmission Date: 20140127
  Serious: Yes (Death)
  Sender: FDA-Public Use
  Company Number: 2013P1001063

PATIENT
  Age: 76 Year
  Sex: Male

DRUGS (2)
  1. DIGOXIN [Suspect]
     Indication: COMPLETED SUICIDE
     Route: 048
  2. WARFARIN [Suspect]
     Indication: COMPLETED SUICIDE
     Route: 048

REACTIONS (2)
  - Completed suicide [None]
  - Cardioactive drug level increased [None]
